FAERS Safety Report 13935953 (Version 1)
Quarter: 2017Q3

REPORT INFORMATION
  Report Type: Spontaneous
  Country: US (occurrence: US)
  Receive Date: 20170904
  Receipt Date: 20170904
  Transmission Date: 20171127
  Serious: No
  Sender: FDA-Public Use
  Company Number: None

PATIENT
  Age: 57 Year
  Sex: Male
  Weight: 117 kg

DRUGS (1)
  1. ATORVASTATIN [Suspect]
     Active Substance: ATORVASTATIN
     Indication: BLOOD CHOLESTEROL INCREASED
     Dosage: ?          QUANTITY:1 TABLET(S); DAILY ORAL?
     Route: 048
     Dates: start: 20170901, end: 20170904

REACTIONS (9)
  - Abdominal pain upper [None]
  - Oropharyngeal pain [None]
  - Heart rate increased [None]
  - Dysphagia [None]
  - Neck pain [None]
  - Disorientation [None]
  - Wheezing [None]
  - Pyrexia [None]
  - Speech disorder [None]

NARRATIVE: CASE EVENT DATE: 20170904
